FAERS Safety Report 8909758 (Version 1)
Quarter: 2012Q4

REPORT INFORMATION
  Report Type: Spontaneous
  Country: US (occurrence: None)
  Receive Date: 20121109
  Receipt Date: 20121109
  Transmission Date: 20130627
  Serious: Yes (Hospitalization)
  Sender: FDA-Public Use
  Company Number: CRC-12-543

PATIENT
  Age: 70 Year
  Sex: Male
  Weight: 104.33 kg

DRUGS (2)
  1. DILTIAZEM HCL [Suspect]
     Indication: BLOOD PRESSURE HIGH
     Route: 048
     Dates: start: 20120718, end: 20120805
  2. DILTIAZEM HCL [Suspect]
     Route: 048
     Dates: start: 20120718, end: 20120805

REACTIONS (4)
  - Constipation [None]
  - Abdominal pain [None]
  - Blood pressure increased [None]
  - Product substitution issue [None]
